FAERS Safety Report 10613446 (Version 3)
Quarter: 2014Q4

REPORT INFORMATION
  Report Type: Report from Study
  Country: CA (occurrence: CA)
  Receive Date: 20141128
  Receipt Date: 20141229
  Transmission Date: 20150529
  Serious: Yes (Hospitalization, Other)
  Sender: FDA-Public Use
  Company Number: CA-JNJFOC-20140913867

PATIENT
  Age: 65 Year
  Sex: Male
  Weight: 100 kg

DRUGS (3)
  1. REMICADE [Suspect]
     Active Substance: INFLIXIMAB
     Indication: COLITIS ULCERATIVE
     Route: 042
     Dates: end: 20141008
  2. REMICADE [Suspect]
     Active Substance: INFLIXIMAB
     Indication: COLITIS ULCERATIVE
     Dosage: 10 MG/KG RESCUE DOSE
     Route: 042
     Dates: start: 20140812
  3. REMICADE [Suspect]
     Active Substance: INFLIXIMAB
     Indication: COLITIS ULCERATIVE
     Route: 042
     Dates: start: 20140826

REACTIONS (6)
  - Intestinal resection [Recovering/Resolving]
  - Malaise [Unknown]
  - Drug ineffective [Unknown]
  - Ileostomy [Unknown]
  - Colitis ulcerative [Unknown]
  - Dizziness [Unknown]

NARRATIVE: CASE EVENT DATE: 2014
